FAERS Safety Report 6759926-6 (Version None)
Quarter: 2010Q2

REPORT INFORMATION
  Report Type: 
  Country: None (occurrence: None)
  Receive Date: 20100608
  Receipt Date: 20100524
  Transmission Date: 20101027
  Serious: No
  Sender: FDA-Public Use
  Company Number: US-B.I. PHARMACEUTICALS,INC./RIDGEFIELD-2010-BP-05888BP

PATIENT
  Age: 66 Year
  Sex: Female

DRUGS (5)
  1. COMBIVENT [Suspect]
     Indication: CHRONIC OBSTRUCTIVE PULMONARY DISEASE
     Dosage: 12 PUF
     Route: 055
     Dates: start: 20070101
  2. DIAZIDE [Concomitant]
     Indication: HYPERTENSION
  3. PAXIL [Concomitant]
     Indication: DEPRESSION
  4. MICARDIS [Concomitant]
     Indication: HYPERTENSION
     Dates: start: 20100101
  5. SPIRIVA [Concomitant]
     Indication: CHRONIC OBSTRUCTIVE PULMONARY DISEASE
     Dates: start: 20100501

REACTIONS (1)
  - HEART RATE IRREGULAR [None]
